FAERS Safety Report 5491793-3 (Version None)
Quarter: 2007Q4

REPORT INFORMATION
  Report Type: 
  Country: None (occurrence: None)
  Receive Date: 20071018
  Receipt Date: 20071018
  Transmission Date: 20080405
  Serious: Yes (Hospitalization)
  Sender: FDA-Public Use
  Company Number: None

PATIENT
  Age: 9 Year
  Sex: Female
  Weight: 32.659 kg

DRUGS (2)
  1. FR COOLING BDY MST SBLOCK SPF 30 AVOBNZE 3% HOMSLATE 8% OCTISLATE 4% O [Suspect]
     Indication: PROPHYLAXIS
     Dates: start: 20070621, end: 20070621
  2. FR COOLING BDY MST SBLOCK SPF 30 AVOBNZE 3% HOMSLATE 8% OCTISLATE 4% O [Suspect]
     Indication: SUNBURN
     Dates: start: 20070621, end: 20070621

REACTIONS (3)
  - ANGIOEDEMA [None]
  - HEADACHE [None]
  - SKIN EXFOLIATION [None]
